FAERS Safety Report 5105533-0 (Version None)
Quarter: 2006Q3

REPORT INFORMATION
  Report Type: 
  Country: None (occurrence: None)
  Receive Date: 20060915
  Receipt Date: 20060818
  Transmission Date: 20061208
  Serious: Yes (Hospitalization, Other)
  Sender: FDA-Public Use
  Company Number: US-BRISTOL-MYERS SQUIBB COMPANY-13482559

PATIENT
  Age: 46 Year
  Sex: Male
  Weight: 51 kg

DRUGS (12)
  1. REYATAZ [Suspect]
     Indication: HIV INFECTION
     Dates: start: 20040401
  2. PLAVIX [Concomitant]
  3. LASIX [Concomitant]
  4. AVANDIA [Concomitant]
  5. METFORMIN HCL [Concomitant]
  6. ZIAGEN [Concomitant]
  7. EMTRIVA [Concomitant]
  8. ASPIRIN [Concomitant]
  9. FLONASE [Concomitant]
  10. ZYRTEC [Concomitant]
  11. ZETIA [Concomitant]
  12. ATENOLOL [Concomitant]

REACTIONS (3)
  - CONDUCTION DISORDER [None]
  - PALPITATIONS [None]
  - PERICARDIAL EFFUSION [None]
